FAERS Safety Report 6715634-9 (Version None)
Quarter: 2010Q2

REPORT INFORMATION
  Report Type: 
  Country: None (occurrence: None)
  Receive Date: 20100506
  Receipt Date: 20100506
  Transmission Date: 20101027
  Serious: Yes (Life-Threatening, Hospitalization, Other)
  Sender: FDA-Public Use
  Company Number: None

PATIENT
  Age: 94 Year
  Sex: Female
  Weight: 59.4 kg

DRUGS (7)
  1. WARFARIN SODIUM [Suspect]
     Indication: ATRIAL FIBRILLATION
     Dosage: 2MG DAILY PO OUTPT DOSE
     Route: 048
  2. AMIODARONE HYDROCHLORIDE [Concomitant]
  3. SERTRALINE HCL [Concomitant]
  4. IPRATROPIUM [Concomitant]
  5. SPIRONOLACTONE [Concomitant]
  6. DILTIAZEM HCL [Concomitant]
  7. FLUTICASONE/SALMETEROL [Concomitant]

REACTIONS (2)
  - INTERNATIONAL NORMALISED RATIO INCREASED [None]
  - SUBDURAL HAEMATOMA [None]
